FAERS Safety Report 10004186 (Version 4)
Quarter: 2014Q2

REPORT INFORMATION
  Report Type: Spontaneous
  Country: US (occurrence: US)
  Receive Date: 20140312
  Receipt Date: 20140502
  Transmission Date: 20141212
  Serious: Yes (Death)
  Sender: FDA-Public Use
  Company Number: US-INCYTE CORPORATION-2013IN003064

PATIENT
  Age: 67 Year
  Sex: Male

DRUGS (10)
  1. JAKAFI [Suspect]
     Indication: MYELOFIBROSIS
     Dosage: 20 MG, BID
     Route: 048
     Dates: start: 20131023, end: 20131215
  2. JAKAFI [Suspect]
     Dosage: 10 MG, BID
     Route: 048
     Dates: start: 20131216, end: 20140112
  3. JAKAFI [Suspect]
     Dosage: 5 MG, BID
     Route: 048
     Dates: start: 20140113, end: 20140120
  4. JAKAFI [Suspect]
     Dosage: 10 MG, BID
     Route: 048
  5. JANUVIA [Concomitant]
     Dosage: 100 MG, QD
  6. METFORMIN [Concomitant]
     Dosage: 500 MG, BID
  7. ALLOPURINOL [Concomitant]
     Dosage: 100 MG, QD
  8. ASPIRIN [Concomitant]
     Dosage: 81 MG, QD
  9. ATORVASTATIN [Concomitant]
     Dosage: 10 MG, QD
  10. ATENOLOL [Concomitant]
     Dosage: 25 MG, QD

REACTIONS (8)
  - Thrombotic microangiopathy [Fatal]
  - Renal impairment [Fatal]
  - Hepatic failure [Fatal]
  - Mental status changes [Fatal]
  - Stem cell transplant [Fatal]
  - Graft versus host disease [Fatal]
  - Fatigue [Not Recovered/Not Resolved]
  - Drug administration error [Unknown]
